FAERS Safety Report 8556102-1 (Version None)
Quarter: 2012Q3

REPORT INFORMATION
  Report Type: 
  Country: None (occurrence: None)
  Receive Date: 20120719
  Receipt Date: 20120711
  Transmission Date: 20120928
  Serious: Yes (Congenital Anomaly, Other)
  Sender: FDA-Public Use
  Company Number: GER/GER/12/0025018

PATIENT
  Sex: Male

DRUGS (2)
  1. FOLIO (FOLIO) [Concomitant]
  2. RISPERIDONE [Suspect]
     Indication: BIPOLAR I DISORDER
     Dosage: 2 MG, 1 D, TRANSPLACENTAL
     Route: 064
     Dates: start: 20110621, end: 20120402

REACTIONS (3)
  - CONGENITAL ANOMALY [None]
  - MATERNAL DRUGS AFFECTING FOETUS [None]
  - HAEMANGIOMA [None]
